FAERS Safety Report 18622973 (Version 1)
Quarter: 2020Q4

REPORT INFORMATION
  Report Type: Spontaneous
  Country: US (occurrence: US)
  Receive Date: 20201216
  Receipt Date: 20201216
  Transmission Date: 20210114
  Serious: Yes (Other)
  Sender: FDA-Public Use
  Company Number: US-ROCHE-2683345

PATIENT
  Sex: Female

DRUGS (2)
  1. ACTEMRA [Suspect]
     Active Substance: TOCILIZUMAB
     Indication: POLYMYALGIA RHEUMATICA
     Dosage: 162 MG/0.9 M ACTPEN
     Route: 058
     Dates: start: 20200731
  2. ACTEMRA [Suspect]
     Active Substance: TOCILIZUMAB

REACTIONS (5)
  - Major depression [Unknown]
  - Post-traumatic stress disorder [Unknown]
  - Intentional product use issue [Unknown]
  - Off label use [Unknown]
  - Muscle spasms [Unknown]
